FAERS Safety Report 6909539-8 (Version None)
Quarter: 2010Q3

REPORT INFORMATION
  Report Type: 
  Country: None (occurrence: None)
  Receive Date: 20100805
  Receipt Date: 20100729
  Transmission Date: 20110219
  Serious: Yes (Other)
  Sender: FDA-Public Use
  Company Number: CH-WYE-G06478310

PATIENT
  Age: 40 Year
  Sex: Female

DRUGS (5)
  1. EFFEXOR XR [Suspect]
     Indication: DEPRESSION
     Dosage: 150 MG TWICE DAILY,THEN REDUCED TO 75 MG DAILY AND THEN STOPPED
     Route: 048
     Dates: start: 20070101, end: 20090928
  2. CO-DAFALGAN [Concomitant]
     Indication: MIGRAINE
  3. XANAX [Concomitant]
     Indication: DEPRESSION
     Route: 048
     Dates: start: 20070101
  4. AURORIX [Interacting]
     Indication: DEPRESSION
     Route: 048
     Dates: start: 20090930, end: 20090930
  5. HALDOL [Concomitant]
     Indication: DEPRESSION
     Route: 048
     Dates: start: 20070101

REACTIONS (8)
  - DISCOMFORT [None]
  - DRUG EFFECT DECREASED [None]
  - DRUG INTERACTION [None]
  - HEADACHE [None]
  - NAUSEA [None]
  - SEROTONIN SYNDROME [None]
  - SLEEP DISORDER [None]
  - VOMITING [None]
